FAERS Safety Report 8583061 (Version 2)
Quarter: 2012Q4

REPORT INFORMATION
  Report Type: Spontaneous
  Country: DE (occurrence: None)
  Receive Date: 20120507
  Receipt Date: 20120723
  Transmission Date: 20130627
  Serious: Yes (Hospitalization)
  Sender: FDA-Public Use
  Company Number: 2012032219

PATIENT
  Age: 17 Year
  Sex: Female

DRUGS (1)
  1. ANTIHEMOPHILIC FACTOR (HUMAN) NOS [Suspect]
     Indication: VON WILLEBRAND^S DISEASE
     Dosage: 2000 IU PRN INTRAVENOUS (NOT OTHERWISE SPECIFIED)
     Route: 042

REACTIONS (3)
  - Cardiovascular disorder [None]
  - Nausea [None]
  - Vertigo [None]
